FAERS Safety Report 6573410-4 (Version None)
Quarter: 2010Q1

REPORT INFORMATION
  Report Type: 
  Country: None (occurrence: None)
  Receive Date: 20100208
  Receipt Date: 20100127
  Transmission Date: 20100710
  Serious: Yes (Hospitalization)
  Sender: FDA-Public Use
  Company Number: US-PFIZER INC-2010013167

PATIENT
  Sex: Female
  Weight: 77 kg

DRUGS (1)
  1. AROMASIN [Suspect]
     Indication: BREAST CANCER METASTATIC
     Dosage: 25 MG, UNK
     Route: 048
     Dates: start: 20091201, end: 20100101

REACTIONS (2)
  - AMMONIA INCREASED [None]
  - DEHYDRATION [None]
